FAERS Safety Report 8369190-2 (Version None)
Quarter: 2012Q1

REPORT INFORMATION
  Report Type: 
  Country: None (occurrence: None)
  Receive Date: 20120323
  Receipt Date: 20111207
  Transmission Date: 20120608
  Serious: Yes (Other)
  Sender: FDA-Public Use
  Company Number: 163-21880-11082467

PATIENT
  Age: 77 Year
  Sex: Female
  Weight: 59.8748 kg

DRUGS (18)
  1. ONCE A DAY IRON (IRON) [Concomitant]
  2. PREDNISOLONE ACETATE EYE DROPS (PREDNISOLONE) [Concomitant]
  3. PROCHLORPERAZINE MALEATE [Concomitant]
  4. REVLIMID [Suspect]
     Indication: MULTIPLE MYELOMA
     Dosage: 25 MG, PO
     Route: 048
     Dates: start: 20101207
  5. SIMVASTATIN [Concomitant]
  6. LEVOTHYROXINE SODIUM [Concomitant]
  7. NORMODYNE [Concomitant]
  8. POTASSIUM CHLORIDE [Concomitant]
  9. FIORINAL [Concomitant]
  10. ASPIRIN [Concomitant]
  11. SENOKOT-S (SENOKOT-S) [Concomitant]
  12. METHYLPREDNISOLONE [Concomitant]
  13. DEXAMETHASONE [Concomitant]
  14. MULTIVITAMIN [Concomitant]
  15. VALACYCLOVIR (VALACICLOVIR HYDROCHLORIDE) [Concomitant]
  16. LOPID [Concomitant]
  17. CLINDAMYCIN HCL (CLINDAMYCIN HYDROCHLORIDE) [Concomitant]
  18. ZOMETA [Concomitant]

REACTIONS (5)
  - ACTIVITIES OF DAILY LIVING IMPAIRED [None]
  - PANCYTOPENIA [None]
  - DIZZINESS [None]
  - DYSSTASIA [None]
  - DRUG INTOLERANCE [None]
